FAERS Safety Report 6105269-3 (Version None)
Quarter: 2009Q1

REPORT INFORMATION
  Report Type: 
  Country: None (occurrence: None)
  Receive Date: 20090306
  Receipt Date: 20090303
  Transmission Date: 20090719
  Serious: Yes (Death, Hospitalization)
  Sender: FDA-Public Use
  Company Number: CA-ABBOTT-09P-028-0560124-00

PATIENT
  Sex: Female
  Weight: 5.5 kg

DRUGS (7)
  1. SYNAGIS [Suspect]
     Indication: ANTIVIRAL PROPHYLAXIS
     Route: 030
     Dates: start: 20081216, end: 20081216
  2. RANITIDINE [Concomitant]
     Indication: GASTROOESOPHAGEAL REFLUX DISEASE
  3. ASPIRIN [Concomitant]
     Indication: CARDIAC DISORDER
  4. LASIX [Concomitant]
     Indication: CARDIAC DISORDER
  5. CAPTOPRIL [Concomitant]
     Indication: CARDIAC DISORDER
  6. SPIRONOLACTONE [Concomitant]
     Indication: CARDIAC DISORDER
  7. VITAMIN D [Concomitant]
     Indication: VITAMIN SUPPLEMENTATION

REACTIONS (1)
  - DEATH [None]
